FAERS Safety Report 5775089-8 (Version None)
Quarter: 2008Q2

REPORT INFORMATION
  Report Type: 
  Country: None (occurrence: None)
  Receive Date: 20080616
  Receipt Date: 20080616
  Transmission Date: 20081010
  Serious: Yes (Life-Threatening, Other)
  Sender: FDA-Public Use
  Company Number: None

PATIENT
  Age: 50 Year
  Sex: Female
  Weight: 74.8435 kg

DRUGS (2)
  1. PROTONIX [Suspect]
     Indication: ABDOMINAL PAIN UPPER
     Dosage: 40 MG TABLET ONCE PER DAY ORAL
     Route: 048
     Dates: start: 20070911, end: 20070913
  2. PROTONIX [Suspect]
     Indication: GASTRIC ULCER
     Dosage: 40 MG TABLET ONCE PER DAY ORAL
     Route: 048
     Dates: start: 20070911, end: 20070913

REACTIONS (7)
  - ABDOMINAL PAIN UPPER [None]
  - BACK PAIN [None]
  - CHROMATURIA [None]
  - DRUG INEFFECTIVE [None]
  - FATIGUE [None]
  - JAUNDICE [None]
  - RASH [None]
